FAERS Safety Report 4523240-X (Version None)
Quarter: 2004Q4

REPORT INFORMATION
  Report Type: 
  Country: None (occurrence: None)
  Receive Date: 20041208
  Receipt Date: 20041201
  Transmission Date: 20050328
  Serious: Yes (Death)
  Sender: FDA-Public Use
  Company Number: 2004AP05893

PATIENT
  Age: 74 Year
  Sex: Male

DRUGS (20)
  1. IRESSA [Suspect]
     Indication: NON-SMALL CELL LUNG CANCER
     Dosage: 250 MG DAILY PO
     Route: 048
     Dates: start: 20040630, end: 20040727
  2. IRESSA [Suspect]
     Indication: NON-SMALL CELL LUNG CANCER
     Dosage: 250 MG DAILY PO
     Route: 048
     Dates: start: 20040817, end: 20040903
  3. LOXONIN [Concomitant]
  4. SELBEX [Concomitant]
  5. HEPARIN NA LOCK [Concomitant]
  6. GASMOTIN [Concomitant]
  7. HARNAL [Concomitant]
  8. FUNGIZONE [Concomitant]
  9. FAMOTIDINE [Concomitant]
  10. RINDERON [Concomitant]
  11. BLOPRESS [Concomitant]
  12. MARUYAMA VACCINE [Concomitant]
  13. CRAVIT [Concomitant]
  14. GENTACIN [Concomitant]
  15. ADALAT [Concomitant]
  16. CARBOPLATIN [Concomitant]
  17. PACLITAXEL [Concomitant]
  18. GEMCITABINE [Concomitant]
  19. DOCETAXEL [Concomitant]
  20. RADIATION THERAPY [Concomitant]

REACTIONS (6)
  - HEADACHE [None]
  - INTERSTITIAL LUNG DISEASE [None]
  - LYMPHANGIOSIS CARCINOMATOSA [None]
  - METASTASES TO CENTRAL NERVOUS SYSTEM [None]
  - PNEUMONIA BACTERIAL [None]
  - VOMITING [None]
